FAERS Safety Report 10236669 (Version 1)
Quarter: 2014Q1

REPORT INFORMATION
  Report Type: Spontaneous
  Country: US (occurrence: None)
  Receive Date: 20140306
  Receipt Date: 20140306
  Transmission Date: 20141002
  Serious: Yes (Life-Threatening, Other)
  Sender: FDA-Public Use
  Company Number: 163-21880-13082039

PATIENT
  Age: 63 Year
  Sex: Female
  Weight: 85 kg

DRUGS (7)
  1. REVLIMID (LENALIDOMIDE) (25 MILLIGRAM, CAPSULES) [Suspect]
     Indication: PLASMA CELL MYELOMA
     Dosage: 25 MG, 21 IN 21 D, PO
     Route: 048
     Dates: start: 201004, end: 2010
  2. NORVASC (AMLODIPINE BESILATE) [Concomitant]
  3. ZOMETA (ZOLEDRONIC ACID) [Concomitant]
  4. CALCIUM 250 + VITAMIN D (OS-CAL) [Concomitant]
  5. DEXAMETHASONE (DEXAMETHASONE) [Concomitant]
  6. DIOVAN (VALSARTAN) [Concomitant]
  7. ASA (ACETYLSALICYLIC ACID) [Concomitant]

REACTIONS (3)
  - Deep vein thrombosis [None]
  - Muscle spasms [None]
  - Diarrhoea [None]
